FAERS Safety Report 19063144 (Version 1)
Quarter: 2021Q1

REPORT INFORMATION
  Report Type: Spontaneous
  Country: US (occurrence: US)
  Receive Date: 20210325
  Receipt Date: 20210325
  Transmission Date: 20210420
  Serious: No
  Sender: FDA-Public Use
  Company Number: None

PATIENT
  Age: 30 Year
  Sex: Female

DRUGS (7)
  1. ZYRTEC [Suspect]
     Active Substance: CETIRIZINE HYDROCHLORIDE
  2. CYCLOBENZAPRINE HCL ER [Concomitant]
  3. TRAMADOL HCL [Suspect]
     Active Substance: TRAMADOL HYDROCHLORIDE
  4. MELOXICAM. [Suspect]
     Active Substance: MELOXICAM
  5. HUMIRA [Suspect]
     Active Substance: ADALIMUMAB
     Indication: PSORIATIC ARTHROPATHY
     Route: 058
  6. FOLIC ACID. [Suspect]
     Active Substance: FOLIC ACID
  7. METHOTREXATE. [Suspect]
     Active Substance: METHOTREXATE

REACTIONS (2)
  - Maternal exposure during pregnancy [None]
  - Foetal exposure during pregnancy [None]

NARRATIVE: CASE EVENT DATE: 20210324
